FAERS Safety Report 4319231-4 (Version None)
Quarter: 2004Q1

REPORT INFORMATION
  Report Type: 
  Country: None (occurrence: None)
  Receive Date: 20040316
  Receipt Date: 20040302
  Transmission Date: 20041129
  Serious: Yes (Hospitalization)
  Sender: FDA-Public Use
  Company Number: 03P-251-0242033

PATIENT
  Age: 7 Year
  Sex: Male

DRUGS (1)
  1. VALPROATE SODIUM [Suspect]
     Dosage: 450 MG, 3 IN 1 D, ORAL
     Route: 048
     Dates: start: 20000101

REACTIONS (3)
  - DRUG INEFFECTIVE [None]
  - EPILEPSY [None]
  - PHARMACEUTICAL PRODUCT COMPLAINT [None]
